FAERS Safety Report 19274874 (Version 1)
Quarter: 2021Q2

REPORT INFORMATION
  Report Type: Spontaneous
  Country: US (occurrence: US)
  Receive Date: 20210519
  Receipt Date: 20210519
  Transmission Date: 20210717
  Serious: Yes (Other)
  Sender: FDA-Public Use
  Company Number: US-SA-2021SA163464

PATIENT
  Age: 42 Year
  Sex: Male

DRUGS (1)
  1. ZANTAC [Suspect]
     Active Substance: RANITIDINE HYDROCHLORIDE
     Indication: DYSPEPSIA
     Dosage: 300 MG, QD
     Dates: start: 200401, end: 200601

REACTIONS (5)
  - Colorectal cancer stage IV [Not Recovered/Not Resolved]
  - Hepatic cancer stage IV [Unknown]
  - Disease progression [Not Recovered/Not Resolved]
  - Lung carcinoma cell type unspecified stage IV [Unknown]
  - Prostate cancer stage 0 [Unknown]

NARRATIVE: CASE EVENT DATE: 20090501
